FAERS Safety Report 9719708 (Version 4)
Quarter: 2014Q4

REPORT INFORMATION
  Report Type: Report from Study
  Country: US (occurrence: US)
  Receive Date: 20131128
  Receipt Date: 20141031
  Transmission Date: 20150529
  Serious: Yes (Death, Hospitalization, Other)
  Sender: FDA-Public Use
  Company Number: US-ALEXION PHARMACEUTICALS INC.-A200800476

PATIENT

DRUGS (1)
  1. SOLIRIS [Suspect]
     Active Substance: ECULIZUMAB
     Indication: PAROXYSMAL NOCTURNAL HAEMOGLOBINURIA
     Dosage: UNK
     Route: 042

REACTIONS (8)
  - Cardiac failure congestive [Unknown]
  - Fatigue [Unknown]
  - Drug ineffective [Unknown]
  - Arthralgia [Unknown]
  - Death [Fatal]
  - Splenomegaly [Unknown]
  - Myelofibrosis [Fatal]
  - Asthenia [Unknown]

NARRATIVE: CASE EVENT DATE: 20110921
